FAERS Safety Report 10562991 (Version 1)
Quarter: 2014Q4

REPORT INFORMATION
  Report Type: Spontaneous
  Country: US (occurrence: None)
  Receive Date: 20141103
  Receipt Date: 20141103
  Transmission Date: 20150529
  Serious: No
  Sender: FDA-Public Use
  Company Number: None

PATIENT
  Age: 54 Year
  Sex: Male

DRUGS (14)
  1. NOREPINEPHRINE [Concomitant]
     Active Substance: NOREPINEPHRINE\NOREPINEPHRINE BITARTRATE
  2. VANCOMYCIN [Concomitant]
     Active Substance: VANCOMYCIN
  3. ENOXAPARIN [Suspect]
     Active Substance: ENOXAPARIN
     Indication: DEEP VEIN THROMBOSIS
     Route: 058
     Dates: start: 20140622, end: 20140804
  4. MAGNESIUM SULFATE. [Concomitant]
     Active Substance: MAGNESIUM SULFATE
  5. CEFEPIME [Concomitant]
     Active Substance: CEFEPIME\CEFEPIME HYDROCHLORIDE
  6. DOXYCYCLINE. [Concomitant]
     Active Substance: DOXYCYCLINE
  7. FENTANYL. [Concomitant]
     Active Substance: FENTANYL
  8. GABAPENTIN. [Concomitant]
     Active Substance: GABAPENTIN
  9. LORAZEPAM. [Concomitant]
     Active Substance: LORAZEPAM
  10. IBUPROFEN. [Suspect]
     Active Substance: IBUPROFEN
     Route: 048
  11. DOBUTAMINE [Concomitant]
     Active Substance: DOBUTAMINE\DOBUTAMINE HYDROCHLORIDE
  12. HYDROMORPHONE [Concomitant]
     Active Substance: HYDROMORPHONE
  13. LIDOCAINE. [Concomitant]
     Active Substance: LIDOCAINE
  14. FUROSEMIDE. [Concomitant]
     Active Substance: FUROSEMIDE

REACTIONS (3)
  - Hypoxia [None]
  - Cardiac tamponade [None]
  - Pericardial effusion [None]

NARRATIVE: CASE EVENT DATE: 20140804
